FAERS Safety Report 10723906 (Version 3)
Quarter: 2015Q2

REPORT INFORMATION
  Report Type: Report from Study
  Country: DE (occurrence: DE)
  Receive Date: 20150120
  Receipt Date: 20150518
  Transmission Date: 20150821
  Serious: Yes (Hospitalization)
  Sender: FDA-Public Use
  Company Number: DE-ABBVIE-15K-062-1332051-00

PATIENT
  Age: 41 Year
  Sex: Female
  Weight: 71 kg

DRUGS (2)
  1. HUMIRA [Suspect]
     Active Substance: ADALIMUMAB
     Route: 058
  2. HUMIRA [Suspect]
     Active Substance: ADALIMUMAB
     Indication: PSORIASIS
     Route: 058
     Dates: start: 20120312, end: 20141205

REACTIONS (21)
  - Myocardial infarction [Recovered/Resolved]
  - Nasopharyngitis [Unknown]
  - Skin papilloma [Not Recovered/Not Resolved]
  - House dust allergy [Not Recovered/Not Resolved]
  - Radiculopathy [Recovered/Resolved]
  - Injection site injury [Unknown]
  - Hypertensive crisis [Recovered/Resolved]
  - Vertigo [Recovered/Resolved]
  - Nausea [Unknown]
  - Electrocardiogram abnormal [Unknown]
  - Spinal disorder [Unknown]
  - Blood glucose increased [Unknown]
  - Dyspnoea [Recovered/Resolved]
  - Injection site haematoma [Unknown]
  - PCO2 decreased [Unknown]
  - Chest discomfort [Unknown]
  - Tachycardia [Unknown]
  - Blood pressure increased [Unknown]
  - Hyperhidrosis [Unknown]
  - Discomfort [Recovered/Resolved]
  - White blood cell count increased [Unknown]

NARRATIVE: CASE EVENT DATE: 20121023
